FAERS Safety Report 25547988 (Version 2)
Quarter: 2025Q3

REPORT INFORMATION
  Report Type: Spontaneous
  Country: US (occurrence: US)
  Receive Date: 20250714
  Receipt Date: 20250718
  Transmission Date: 20251020
  Serious: Yes (Other)
  Sender: DR REDDYS
  Company Number: US-DRL-USA-USA/2025/07/010120

PATIENT
  Sex: Female

DRUGS (1)
  1. DIETARY SUPPLEMENT [Suspect]
     Active Substance: DIETARY SUPPLEMENT
     Indication: Vitamin supplementation
     Route: 065

REACTIONS (4)
  - Abortion spontaneous [Unknown]
  - Exposure during pregnancy [Unknown]
  - Abdominal pain upper [Unknown]
  - Haemorrhage [Unknown]

NARRATIVE: CASE EVENT DATE: 20241101
